FAERS Safety Report 8171623-1 (Version None)
Quarter: 2012Q1

REPORT INFORMATION
  Report Type: 
  Country: None (occurrence: None)
  Receive Date: 20120113
  Receipt Date: 20111215
  Transmission Date: 20120608
  Serious: No
  Sender: FDA-Public Use
  Company Number: PHEH2011US008927

PATIENT
  Age: 47 Year
  Sex: Male
  Weight: 71 kg

DRUGS (2)
  1. ILARIS [Suspect]
     Indication: MUCKLE-WELLS SYNDROME
     Dosage: 180 MG, ONCE IN 8 WEEKS, SUBCUTANEOUS
     Route: 058
     Dates: start: 20110713
  2. ILARIS [Suspect]
     Indication: MUCKLE-WELLS SYNDROME
     Dosage: 180 MG, ONCE IN 8 WEEKS, SUBCUTANEOUS
     Route: 058
     Dates: start: 20111109

REACTIONS (1)
  - HEADACHE [None]
